FAERS Safety Report 5988214-0 (Version None)
Quarter: 2008Q4

REPORT INFORMATION
  Report Type: 
  Country: None (occurrence: None)
  Receive Date: 20081204
  Receipt Date: 20081125
  Transmission Date: 20090506
  Serious: Yes (Hospitalization)
  Sender: FDA-Public Use
  Company Number: 2008SP024296

PATIENT
  Age: 65 Year
  Sex: Male
  Weight: 71.2147 kg

DRUGS (7)
  1. PEG-INTRON [Suspect]
     Indication: HEPATITIS C
     Dosage: SC
     Route: 058
     Dates: start: 20080915
  2. RIBAVIRIN [Suspect]
     Indication: HEPATITIS C
     Dosage: PO
     Route: 048
     Dates: start: 20080915
  3. DILANTIN 00017401/ [Concomitant]
  4. NEXIUM [Concomitant]
  5. OSTEO BI-FLEX [Concomitant]
  6. RESCON /00014501/ [Concomitant]
  7. XANAX [Concomitant]

REACTIONS (13)
  - ABASIA [None]
  - ANAEMIA [None]
  - ASTHENIA [None]
  - BACK INJURY [None]
  - BONE PAIN [None]
  - DEHYDRATION [None]
  - DYSPNOEA [None]
  - FATIGUE [None]
  - INFLUENZA [None]
  - OROPHARYNGEAL PAIN [None]
  - PAIN [None]
  - RASH [None]
  - WEIGHT DECREASED [None]
